FAERS Safety Report 23396789 (Version 1)
Quarter: 2024Q1

REPORT INFORMATION
  Report Type: Spontaneous
  Country: US (occurrence: None)
  Receive Date: 20240111
  Receipt Date: 20240111
  Transmission Date: 20240410
  Serious: Yes (Death)
  Sender: FDA-Public Use
  Company Number: None

PATIENT
  Age: 68 Year
  Sex: Female

DRUGS (1)
  1. POMALYST [Suspect]
     Active Substance: POMALIDOMIDE
     Indication: Plasma cell myeloma
     Dosage: FREQUENCY : DAILY;?
     Route: 048
     Dates: start: 20230125, end: 20231122

REACTIONS (4)
  - Unevaluable event [None]
  - Hypotension [None]
  - Spontaneous haemorrhage [None]
  - Catheter site haemorrhage [None]

NARRATIVE: CASE EVENT DATE: 20231213
